FAERS Safety Report 12966558 (Version 3)
Quarter: 2017Q2

REPORT INFORMATION
  Report Type: Report from Study
  Country: None (occurrence: CN)
  Receive Date: 20161122
  Receipt Date: 20170623
  Transmission Date: 20170830
  Serious: Yes (Life-Threatening, Hospitalization)
  Sender: FDA-Public Use
  Company Number: CN-ABBVIE-16P-035-1763973-00

PATIENT
  Age: 58 Year
  Sex: Female
  Weight: 52 kg

DRUGS (11)
  1. SODIUM RABEPRAZOLE [Concomitant]
     Active Substance: RABEPRAZOLE SODIUM
     Indication: PRODUCT USED FOR UNKNOWN INDICATION
     Route: 048
     Dates: start: 20160530, end: 201606
  2. PREDNISON [Concomitant]
     Active Substance: PREDNISONE
     Indication: CROHN^S DISEASE
     Route: 048
     Dates: start: 20160703, end: 20160906
  3. PREDNISON [Concomitant]
     Active Substance: PREDNISONE
     Route: 048
     Dates: start: 20160928, end: 20161004
  4. VALSARTAN. [Concomitant]
     Active Substance: VALSARTAN
     Indication: HYPERTENSION
     Route: 048
     Dates: start: 1997
  5. HUMIRA [Suspect]
     Active Substance: ADALIMUMAB
     Indication: CROHN^S DISEASE
     Route: 058
     Dates: start: 20160810, end: 20161019
  6. PREDNISON [Concomitant]
     Active Substance: PREDNISONE
     Route: 048
     Dates: start: 20160914, end: 20160920
  7. PREDNISON [Concomitant]
     Active Substance: PREDNISONE
     Route: 048
     Dates: start: 20160921, end: 20160927
  8. BISOPROLOL FUMARATE. [Concomitant]
     Active Substance: BISOPROLOL FUMARATE
     Indication: HYPERTENSION
     Route: 048
     Dates: start: 1997
  9. CLOSTRIDIUM BUTYRICUM TABLETS [Concomitant]
     Indication: CROHN^S DISEASE
     Route: 048
     Dates: start: 201604, end: 20161025
  10. PREDNISON [Concomitant]
     Active Substance: PREDNISONE
     Route: 048
     Dates: start: 20160907, end: 20160913
  11. METHYLPREDNISOLONE SODIUM SUCCINATE. [Concomitant]
     Active Substance: METHYLPREDNISOLONE SODIUM SUCCINATE
     Indication: CROHN^S DISEASE
     Dates: start: 20160526, end: 20160530

REACTIONS (1)
  - Crohn^s disease [Recovered/Resolved]

NARRATIVE: CASE EVENT DATE: 20161025
